FAERS Safety Report 7892347-1 (Version None)
Quarter: 2011Q4

REPORT INFORMATION
  Report Type: 
  Country: None (occurrence: None)
  Receive Date: 20111103
  Receipt Date: 20111103
  Transmission Date: 20120403
  Serious: Yes (Hospitalization)
  Sender: FDA-Public Use
  Company Number: None

PATIENT
  Age: 68 Year
  Sex: Male
  Weight: 102.2 kg

DRUGS (1)
  1. ASPIRIN [Suspect]
     Indication: PAIN
     Dosage: 325 MG PRN PO
     Route: 048
     Dates: start: 20090809, end: 20111013

REACTIONS (8)
  - HYPOKALAEMIA [None]
  - VOMITING [None]
  - FALL [None]
  - BLOOD PRESSURE DECREASED [None]
  - DIZZINESS [None]
  - DECREASED APPETITE [None]
  - HAEMATOCHEZIA [None]
  - NAUSEA [None]
